FAERS Safety Report 23695456 (Version 2)
Quarter: 2024Q2

REPORT INFORMATION
  Report Type: Spontaneous
  Country: IN (occurrence: IN)
  Receive Date: 20240402
  Receipt Date: 20240410
  Transmission Date: 20240715
  Serious: Yes (Other)
  Sender: FDA-Public Use
  Company Number: IN-ALKEM LABORATORIES LIMITED-IN-ALKEM-2024-05931

PATIENT
  Age: 16 Year
  Sex: Male

DRUGS (2)
  1. TACROLIMUS [Suspect]
     Active Substance: TACROLIMUS
     Indication: Immunosuppressant drug therapy
     Dosage: UNK
     Route: 065
  2. TACROLIMUS [Suspect]
     Active Substance: TACROLIMUS
     Dosage: UNK (RESTARTED DOSE)
     Route: 065

REACTIONS (1)
  - Osmotic demyelination syndrome [Recovered/Resolved]
